FAERS Safety Report 21549385 (Version 9)
Quarter: 2024Q4

REPORT INFORMATION
  Report Type: Report from Study
  Country: AU (occurrence: AU)
  Receive Date: 20221103
  Receipt Date: 20241126
  Transmission Date: 20250115
  Serious: Yes (Hospitalization, Other)
  Sender: TAKEDA
  Company Number: AU-TAKEDA-2022TUS081725

PATIENT
  Age: 85 Year
  Sex: Male

DRUGS (3)
  1. VEDOLIZUMAB [Suspect]
     Active Substance: VEDOLIZUMAB
     Indication: Crohn^s disease
     Dosage: 300 MILLIGRAM
  2. VEDOLIZUMAB [Suspect]
     Active Substance: VEDOLIZUMAB
     Dosage: 300 MILLIGRAM
  3. VEDOLIZUMAB [Suspect]
     Active Substance: VEDOLIZUMAB
     Dosage: 300 MILLIGRAM

REACTIONS (19)
  - Pasteurella infection [Unknown]
  - Haemoglobin decreased [Not Recovered/Not Resolved]
  - Device related infection [Unknown]
  - Device failure [Unknown]
  - Cardiac failure [Unknown]
  - Arthritis bacterial [Unknown]
  - Clostridium difficile infection [Unknown]
  - Arthralgia [Unknown]
  - Crohn^s disease [Unknown]
  - Fall [Unknown]
  - COVID-19 [Unknown]
  - Skin laceration [Unknown]
  - Illness [Recovered/Resolved]
  - Malaise [Recovered/Resolved]
  - Inappropriate schedule of product administration [Recovered/Resolved]
  - Confusional state [Unknown]
  - Heart rate irregular [Not Recovered/Not Resolved]
  - Vein collapse [Unknown]
  - Poor venous access [Unknown]

NARRATIVE: CASE EVENT DATE: 20230401
